FAERS Safety Report 23673078 (Version 1)
Quarter: 2024Q1

REPORT INFORMATION
  Report Type: Spontaneous
  Country: ES (occurrence: ES)
  Receive Date: 20240326
  Receipt Date: 20240326
  Transmission Date: 20240410
  Serious: Yes (Hospitalization)
  Sender: FDA-Public Use
  Company Number: ES-SUN PHARMACEUTICAL INDUSTRIES LTD-2024RR-438268

PATIENT
  Age: 61 Year
  Sex: Male

DRUGS (3)
  1. OXALIPLATIN [Suspect]
     Active Substance: OXALIPLATIN
     Indication: Oesophageal adenocarcinoma
     Dosage: 1 CYCLE
     Route: 065
     Dates: start: 20220602, end: 20220602
  2. FLUOROURACIL [Suspect]
     Active Substance: FLUOROURACIL
     Indication: Oesophageal adenocarcinoma
     Dosage: 1 CYCLE
     Route: 065
     Dates: start: 20220602, end: 20220602
  3. LEUCOVORIN [Suspect]
     Active Substance: LEUCOVORIN\LEUCOVORIN CALCIUM
     Indication: Oesophageal adenocarcinoma
     Dosage: 1 CYCLE
     Route: 065
     Dates: start: 20220602, end: 20220602

REACTIONS (4)
  - Toxic encephalopathy [Recovered/Resolved]
  - Disorientation [Recovered/Resolved]
  - Dysarthria [Recovered/Resolved]
  - Dysarthria [Recovered/Resolved]

NARRATIVE: CASE EVENT DATE: 20220603
